FAERS Safety Report 24422355 (Version 1)
Quarter: 2024Q4

REPORT INFORMATION
  Report Type: Spontaneous
  Country: FR (occurrence: FR)
  Receive Date: 20241010
  Receipt Date: 20241010
  Transmission Date: 20250115
  Serious: Yes (Disabling, Other)
  Sender: NOVARTIS
  Company Number: None

PATIENT
  Age: 88 Year
  Sex: Female

DRUGS (1)
  1. BEOVU [Suspect]
     Active Substance: BROLUCIZUMAB-DBLL
     Indication: Age-related macular degeneration
     Dosage: 6 MG
     Route: 047
     Dates: start: 20240606, end: 20240718

REACTIONS (3)
  - Retinal vasculitis [Recovered/Resolved with Sequelae]
  - Retinal degeneration [Recovered/Resolved with Sequelae]
  - Uveitis [Recovering/Resolving]

NARRATIVE: CASE EVENT DATE: 20240829
